FAERS Safety Report 13195537 (Version 1)
Quarter: 2017Q1

REPORT INFORMATION
  Report Type: Spontaneous
  Country: BR (occurrence: BR)
  Receive Date: 20170208
  Receipt Date: 20170208
  Transmission Date: 20170428
  Serious: Yes (Other)
  Sender: FDA-Public Use
  Company Number: BR-AMGEN-BRASP2017020262

PATIENT
  Age: 54 Year
  Sex: Female

DRUGS (1)
  1. ENBREL [Suspect]
     Active Substance: ETANERCEPT
     Indication: RHEUMATOID ARTHRITIS
     Dosage: UNK
     Route: 065
     Dates: start: 20161005

REACTIONS (8)
  - Rheumatoid arthritis [Unknown]
  - Feeling abnormal [Unknown]
  - Arthropathy [Unknown]
  - Weight increased [Unknown]
  - Dyspnoea [Unknown]
  - Fibromyalgia [Unknown]
  - Pain [Unknown]
  - Spinal osteoarthritis [Unknown]
